FAERS Safety Report 18534066 (Version 2)
Quarter: 2020Q4

REPORT INFORMATION
  Report Type: Spontaneous
  Country: US (occurrence: US)
  Receive Date: 20201123
  Receipt Date: 20201210
  Transmission Date: 20210114
  Serious: Yes (Hospitalization, Other)
  Sender: FDA-Public Use
  Company Number: US-009507513-2011USA009249

PATIENT
  Age: 72 Year
  Sex: Female
  Weight: 55.79 kg

DRUGS (7)
  1. BENADRYL [Concomitant]
     Active Substance: DIPHENHYDRAMINE HYDROCHLORIDE
  2. NOXAFIL [Suspect]
     Active Substance: POSACONAZOLE
     Dosage: 100 MG THREE BY MONTH DAILY ORALLY
     Route: 048
     Dates: start: 20200912, end: 202010
  3. METHYLPREDNISOLONE. [Suspect]
     Active Substance: METHYLPREDNISOLONE
     Dosage: 40 MILLIGRAM
     Route: 042
     Dates: start: 201903
  4. TYLENOL [Concomitant]
     Active Substance: ACETAMINOPHEN
  5. FAMOTIDINE. [Concomitant]
     Active Substance: FAMOTIDINE
  6. VFEND [Suspect]
     Active Substance: VORICONAZOLE
     Dosage: 200 MG TWICE A DAY,TOOK IT EVERY MONTH
     Route: 048
     Dates: start: 20201012, end: 20201015
  7. VFEND [Suspect]
     Active Substance: VORICONAZOLE
     Indication: BRONCHOPULMONARY ASPERGILLOSIS
     Dosage: 200 MG TWICE A DAY,TOOK IT EVERY MONTH
     Route: 048
     Dates: start: 201909, end: 202009

REACTIONS (3)
  - Chemotherapy [Not Recovered/Not Resolved]
  - Bronchopulmonary aspergillosis [Recovered/Resolved]
  - Blood pressure increased [Recovered/Resolved]

NARRATIVE: CASE EVENT DATE: 20200913
